FAERS Safety Report 10431592 (Version 2)
Quarter: 2014Q4

REPORT INFORMATION
  Report Type: Spontaneous
  Country: US (occurrence: None)
  Receive Date: 20140903
  Receipt Date: 20141002
  Transmission Date: 20150528
  Serious: Yes (Death, Hospitalization)
  Sender: FDA-Public Use
  Company Number: KAD201408-001004

PATIENT
  Age: 63 Year
  Sex: Female
  Weight: 102 kg

DRUGS (13)
  1. LASIX [Concomitant]
     Active Substance: FUROSEMIDE
  2. PROAIR HFA [Concomitant]
     Active Substance: ALBUTEROL SULFATE
  3. AMARYL [Concomitant]
     Active Substance: GLIMEPIRIDE
  4. LISINOPRIL/HYDROCHLOROTHIAZIDE (LISINOPRIL, HYDROCHLOROTHIAZIDE) [Concomitant]
  5. LEVOTHYROXINE [Concomitant]
     Active Substance: LEVOTHYROXINE
  6. SOVALDI [Suspect]
     Active Substance: SOFOSBUVIR
     Indication: HEPATITIS C
     Route: 048
     Dates: start: 20140626
  7. ATENOLOL. [Concomitant]
     Active Substance: ATENOLOL
  8. METOPROLOL [Concomitant]
     Active Substance: METOPROLOL
  9. RIBASPHERE RIBAPAK [Suspect]
     Active Substance: RIBAVIRIN
     Indication: HEPATITIS C
     Dosage: TABLET, 1200 MG DAILY (600 MG AM AND 600 MG PM), ORAL
     Route: 048
     Dates: start: 20140626
  10. EFFEXOR [Concomitant]
     Active Substance: VENLAFAXINE HYDROCHLORIDE
  11. OLYSIO [Suspect]
     Active Substance: SIMEPREVIR
     Indication: HEPATITIS C
     Route: 048
     Dates: start: 20140626
  12. METFORMIN [Concomitant]
     Active Substance: METFORMIN HYDROCHLORIDE
  13. MAGNESIUM [Concomitant]
     Active Substance: MAGNESIUM

REACTIONS (2)
  - Renal failure [None]
  - Hepatic failure [None]

NARRATIVE: CASE EVENT DATE: 20140819
